FAERS Safety Report 9859179 (Version 1)
Quarter: 2014Q1

REPORT INFORMATION
  Report Type: Spontaneous
  Country: BR (occurrence: BR)
  Receive Date: 20140131
  Receipt Date: 20140131
  Transmission Date: 20141002
  Serious: Yes (Hospitalization)
  Sender: FDA-Public Use
  Company Number: BR-009507513-1401BRA013722

PATIENT
  Sex: Female
  Weight: 74 kg

DRUGS (1)
  1. COSOPT [Suspect]
     Route: 047

REACTIONS (12)
  - Dengue fever [Recovered/Resolved]
  - Glaucoma [Unknown]
  - Glaucoma surgery [Unknown]
  - Cataract [Unknown]
  - Cataract operation [Unknown]
  - Malaise [Recovered/Resolved]
  - Eye irritation [Recovered/Resolved]
  - Conjunctivitis allergic [Recovered/Resolved]
  - Hiatus hernia [Not Recovered/Not Resolved]
  - Gastrooesophageal reflux disease [Recovering/Resolving]
  - Blood pressure [Not Recovered/Not Resolved]
  - Renal disorder [Not Recovered/Not Resolved]
